FAERS Safety Report 4534317-7 (Version None)
Quarter: 2004Q4

REPORT INFORMATION
  Report Type: 
  Country: None (occurrence: None)
  Receive Date: 20041214
  Receipt Date: 20040813
  Transmission Date: 20050328
  Serious: No
  Sender: FDA-Public Use
  Company Number: 2004228972US

PATIENT
  Age: 77 Year
  Sex: Female
  Weight: 63.5 kg

DRUGS (1)
  1. BEXTRA [Suspect]
     Indication: PAIN IN EXTREMITY
     Dosage: 10 MG, QD, ORAL
     Route: 048
     Dates: start: 20040812

REACTIONS (3)
  - DIFFICULTY IN WALKING [None]
  - MUSCLE CRAMP [None]
  - RESTLESSNESS [None]
